FAERS Safety Report 9528242 (Version 1)
Quarter: 2013Q1

REPORT INFORMATION
  Report Type: Spontaneous
  Country: US (occurrence: None)
  Receive Date: 20130314
  Receipt Date: 20130314
  Transmission Date: 20140127
  Serious: No
  Sender: FDA-Public Use
  Company Number: 1208USA004684

PATIENT
  Age: 79 Year
  Sex: Male

DRUGS (3)
  1. VICTRELIS [Suspect]
     Indication: HEPATITIS C
     Route: 048
     Dates: start: 20120611, end: 20120807
  2. PEGINTRON [Suspect]
     Route: 058
     Dates: start: 20120504, end: 20120807
  3. RIBASPHERE [Suspect]

REACTIONS (4)
  - Thyroid disorder [None]
  - Hormone level abnormal [None]
  - Transfusion [None]
  - Renal disorder [None]
